FAERS Safety Report 22262875 (Version 1)
Quarter: 2023Q2

REPORT INFORMATION
  Report Type: Report from Study
  Country: CO (occurrence: CO)
  Receive Date: 20230428
  Receipt Date: 20230428
  Transmission Date: 20230721
  Serious: Yes (Hospitalization)
  Sender: FDA-Public Use
  Company Number: CO-JNJFOC-20230446252

PATIENT
  Age: 57 Year
  Sex: Female
  Weight: 48 kg

DRUGS (1)
  1. SIMPONI [Suspect]
     Active Substance: GOLIMUMAB
     Indication: Rheumatoid arthritis
     Route: 058
     Dates: start: 20161108, end: 20230313

REACTIONS (4)
  - Syncope [Unknown]
  - Blood pressure decreased [Unknown]
  - Anaemia [Unknown]
  - Influenza [Unknown]

NARRATIVE: CASE EVENT DATE: 20230401
